FAERS Safety Report 7787702-4 (Version None)
Quarter: 2011Q3

REPORT INFORMATION
  Report Type: 
  Country: None (occurrence: None)
  Receive Date: 20110929
  Receipt Date: 20110927
  Transmission Date: 20111222
  Serious: Yes (Other)
  Sender: FDA-Public Use
  Company Number: SE-PFIZER INC-2011109014

PATIENT
  Age: 52 Year
  Sex: Female

DRUGS (1)
  1. SULFASALAZINE [Suspect]
     Indication: ARTHRITIS REACTIVE
     Dosage: UNK
     Dates: end: 20090304

REACTIONS (7)
  - HYPERACUSIS [None]
  - FACE OEDEMA [None]
  - DISTURBANCE IN ATTENTION [None]
  - RASH [None]
  - COGNITIVE DISORDER [None]
  - FEELING ABNORMAL [None]
  - PHOTOPHOBIA [None]
